FAERS Safety Report 13228196 (Version 1)
Quarter: 2017Q1

REPORT INFORMATION
  Report Type: Spontaneous
  Country: US (occurrence: US)
  Receive Date: 20170213
  Receipt Date: 20170213
  Transmission Date: 20170428
  Serious: No
  Sender: FDA-Public Use
  Company Number: US-ROCHE-1844183

PATIENT
  Sex: Female

DRUGS (5)
  1. NIZORAL [Concomitant]
     Active Substance: KETOCONAZOLE
     Indication: ALOPECIA
  2. CYCLOSPORINE. [Concomitant]
     Active Substance: CYCLOSPORINE
     Indication: ECZEMA
  3. XOLAIR [Suspect]
     Active Substance: OMALIZUMAB
     Indication: ECZEMA
     Route: 065
     Dates: start: 20160301
  4. NIZORAL [Concomitant]
     Active Substance: KETOCONAZOLE
     Indication: DANDRUFF
  5. XOLAIR [Suspect]
     Active Substance: OMALIZUMAB
     Indication: ASTHMA
     Route: 065
     Dates: start: 20160331

REACTIONS (1)
  - Alopecia [Recovering/Resolving]
